FAERS Safety Report 9001644 (Version 1)
Quarter: 2013Q1

REPORT INFORMATION
  Report Type: Spontaneous
  Country: US (occurrence: US)
  Receive Date: 20130107
  Receipt Date: 20130107
  Transmission Date: 20140127
  Serious: Yes (Hospitalization)
  Sender: FDA-Public Use
  Company Number: US-PFIZER INC-2013004929

PATIENT
  Age: 86 Year
  Sex: Female
  Weight: 61.22 kg

DRUGS (1)
  1. REVATIO [Suspect]
     Indication: PULMONARY HYPERTENSION
     Dosage: UNK,2X/DAY

REACTIONS (2)
  - Dehydration [Recovered/Resolved]
  - Localised infection [Recovered/Resolved]
